FAERS Safety Report 11474638 (Version 1)
Quarter: 2015Q3

REPORT INFORMATION
  Report Type: Spontaneous
  Country: US (occurrence: US)
  Receive Date: 20150908
  Receipt Date: 20150908
  Transmission Date: 20151125
  Serious: No
  Sender: FDA-Public Use
  Company Number: US-JAZZ-2014-US-007003

PATIENT
  Sex: Female
  Weight: 78.91 kg

DRUGS (8)
  1. XYREM [Suspect]
     Active Substance: SODIUM OXYBATE
     Indication: CATAPLEXY
     Dosage: DOSE ADJUSTMENTS
     Route: 048
  2. NUVIGIL [Concomitant]
     Active Substance: ARMODAFINIL
     Indication: NARCOLEPSY
     Dosage: 150 MG, QD
     Route: 048
  3. NUVIGIL [Concomitant]
     Active Substance: ARMODAFINIL
     Indication: CATAPLEXY
  4. XYREM [Suspect]
     Active Substance: SODIUM OXYBATE
     Dosage: 3.5 G, BID
     Route: 048
     Dates: start: 201405, end: 201408
  5. TRI-SPRINTEC [Concomitant]
     Active Substance: ETHINYL ESTRADIOL\NORGESTIMATE
     Indication: CONTRACEPTION
     Dosage: UNK
     Route: 048
  6. ELIDEL [Concomitant]
     Active Substance: PIMECROLIMUS
     Indication: ECZEMA
     Dosage: UNK
     Route: 061
  7. XYREM [Suspect]
     Active Substance: SODIUM OXYBATE
     Indication: NARCOLEPSY
     Dosage: 2.25 G, BID
     Route: 048
     Dates: start: 201404, end: 2014
  8. XYREM [Suspect]
     Active Substance: SODIUM OXYBATE
     Dosage: 3 G, BID
     Route: 048
     Dates: start: 201408

REACTIONS (9)
  - Tooth erosion [Not Recovered/Not Resolved]
  - Hyperchlorhydria [Unknown]
  - Drug ineffective [Unknown]
  - Toothache [Not Recovered/Not Resolved]
  - Somnambulism [Recovered/Resolved]
  - Malaise [Not Recovered/Not Resolved]
  - Trismus [Not Recovered/Not Resolved]
  - Dry mouth [Not Recovered/Not Resolved]
  - Narcolepsy [Unknown]

NARRATIVE: CASE EVENT DATE: 2014
